FAERS Safety Report 7569544-8 (Version None)
Quarter: 2011Q2

REPORT INFORMATION
  Report Type: 
  Country: None (occurrence: None)
  Receive Date: 20110624
  Receipt Date: 20110620
  Transmission Date: 20111010
  Serious: Yes (Other)
  Sender: FDA-Public Use
  Company Number: US-BRISTOL-MYERS SQUIBB COMPANY-15843758

PATIENT
  Age: 71 Year

DRUGS (6)
  1. PLAVIX [Concomitant]
  2. WARFARIN SODIUM [Concomitant]
  3. CHEMOTHERAPY [Suspect]
     Dates: start: 20070701
  4. LISINOPRIL [Concomitant]
  5. LORAZEPAM [Concomitant]
  6. COUMADIN [Suspect]

REACTIONS (2)
  - INTERNATIONAL NORMALISED RATIO FLUCTUATION [None]
  - TRANSIENT ISCHAEMIC ATTACK [None]
